FAERS Safety Report 6510719-4 (Version None)
Quarter: 2009Q4

REPORT INFORMATION
  Report Type: 
  Country: None (occurrence: None)
  Receive Date: 20091222
  Receipt Date: 20091022
  Transmission Date: 20100525
  Serious: No
  Sender: FDA-Public Use
  Company Number: US-ASTRAZENECA-2009SE21907

PATIENT
  Age: 25223 Day
  Sex: Female
  Weight: 83.5 kg

DRUGS (19)
  1. CRESTOR [Suspect]
     Indication: LOW DENSITY LIPOPROTEIN DECREASED
     Route: 048
     Dates: start: 20091021
  2. INSULIN-HUMULIN [Concomitant]
     Route: 058
  3. CELLCEPT [Concomitant]
     Route: 048
  4. PROGRAF [Concomitant]
     Route: 048
  5. PREDNISONE [Concomitant]
     Route: 048
  6. LASIX [Concomitant]
     Route: 048
  7. ATENOLOL [Concomitant]
     Route: 048
  8. NIFEDIPINE [Concomitant]
     Route: 048
  9. URSODIOL [Concomitant]
     Route: 048
  10. ISOSORBIDE [Concomitant]
     Route: 048
  11. SPIRONOLACTONE [Concomitant]
     Route: 048
  12. CLONIDINE [Concomitant]
     Route: 048
  13. OMEPRAZOLE [Concomitant]
     Route: 048
  14. ASPIRIN [Concomitant]
  15. IRON [Concomitant]
  16. COLACE [Concomitant]
  17. M.V.I. [Concomitant]
  18. CALCIUM WITH D [Concomitant]
  19. TYLENOL (CAPLET) [Concomitant]

REACTIONS (3)
  - BLOOD GLUCOSE INCREASED [None]
  - DIZZINESS [None]
  - MEDICATION ERROR [None]
